FAERS Safety Report 5536216-0 (Version None)
Quarter: 2007Q4

REPORT INFORMATION
  Report Type: 
  Country: None (occurrence: None)
  Receive Date: 20071206
  Receipt Date: 20071127
  Transmission Date: 20080405
  Serious: Yes (Other)
  Sender: FDA-Public Use
  Company Number: JP-PFIZER INC-2007100851

PATIENT
  Sex: Female

DRUGS (3)
  1. FARMORUBICIN [Suspect]
  2. CYCLOPHOSPHAMIDE [Concomitant]
     Route: 042
  3. FLUOROURACIL [Concomitant]

REACTIONS (1)
  - INTERSTITIAL LUNG DISEASE [None]
